FAERS Safety Report 12085968 (Version 2)
Quarter: 2016Q1

REPORT INFORMATION
  Report Type: Spontaneous
  Country: DE (occurrence: DE)
  Receive Date: 20160217
  Receipt Date: 20160311
  Transmission Date: 20160526
  Serious: Yes (Other)
  Sender: FDA-Public Use
  Company Number: GXKR2016DE000879

PATIENT
  Sex: Female
  Weight: 48 kg

DRUGS (2)
  1. DICLO SL 1A PHARMA [Suspect]
     Active Substance: DICLOFENAC SODIUM
     Dosage: 1 DF, QD
     Dates: start: 20160206
  2. DICLO SL 1A PHARMA [Suspect]
     Active Substance: DICLOFENAC SODIUM
     Indication: ARTHRALGIA
     Dosage: 1 DF, UNK
     Route: 048
     Dates: start: 20160123

REACTIONS (5)
  - Dysstasia [Recovered/Resolved]
  - Erythema [Recovered/Resolved]
  - Speech disorder [Recovered/Resolved]
  - Pruritus [Recovered/Resolved]
  - Abasia [Recovered/Resolved]
